FAERS Safety Report 18485662 (Version 6)
Quarter: 2021Q3

REPORT INFORMATION
  Report Type: Report from Study
  Country: EC (occurrence: EC)
  Receive Date: 20201110
  Receipt Date: 20210708
  Transmission Date: 20211014
  Serious: Yes (Other)
  Sender: FDA-Public Use
  Company Number: PHHY2017EC096235

PATIENT
  Age: 53 Year
  Sex: Female

DRUGS (40)
  1. SANDOSTATIN LAR DEPOT [Suspect]
     Active Substance: OCTREOTIDE ACETATE
     Dosage: 20 MG, EVERY 23 DAYS
     Route: 030
     Dates: start: 20171003, end: 20171102
  2. SANDOSTATIN LAR DEPOT [Suspect]
     Active Substance: OCTREOTIDE ACETATE
     Dosage: EVERY 15 DAYS
     Route: 030
     Dates: start: 20190111
  3. SANDOSTATIN LAR DEPOT [Suspect]
     Active Substance: OCTREOTIDE ACETATE
     Dosage: APPLICATION AT 15 DAYS
     Route: 065
     Dates: start: 20190724
  4. SANDOSTATIN LAR DEPOT [Suspect]
     Active Substance: OCTREOTIDE ACETATE
     Dosage: APPLICATION AT 14 DAYS
     Route: 065
     Dates: start: 20190904
  5. SANDOSTATIN LAR DEPOT [Suspect]
     Active Substance: OCTREOTIDE ACETATE
     Dosage: APPLICATION AT 15 DAYS
     Route: 065
     Dates: start: 20191016
  6. SANDOSTATIN LAR DEPOT [Suspect]
     Active Substance: OCTREOTIDE ACETATE
     Dosage: APPLICATED AT 14 DAYS
     Route: 065
     Dates: start: 20190612
  7. SANDOSTATIN LAR DEPOT [Suspect]
     Active Substance: OCTREOTIDE ACETATE
     Dosage: UNK
     Route: 065
     Dates: start: 20200430
  8. SANDOSTATIN LAR DEPOT [Suspect]
     Active Substance: OCTREOTIDE ACETATE
     Dosage: UNK, EVERY 15 DAYS
     Route: 030
     Dates: start: 20200627
  9. SANDOSTATIN LAR DEPOT [Suspect]
     Active Substance: OCTREOTIDE ACETATE
     Dosage: UNK
     Route: 065
     Dates: start: 20200828
  10. SANDOSTATIN LAR DEPOT [Suspect]
     Active Substance: OCTREOTIDE ACETATE
     Dosage: 20 MG, EVERY 15 DAYS
     Route: 030
     Dates: start: 20190501
  11. SANDOSTATIN LAR DEPOT [Suspect]
     Active Substance: OCTREOTIDE ACETATE
     Dosage: 20 MG, EVERY 14 DAYS (APPLIED ON 14 TH DAY)
     Route: 030
     Dates: start: 20190515
  12. SANDOSTATIN LAR DEPOT [Suspect]
     Active Substance: OCTREOTIDE ACETATE
     Dosage: APPLICATION AT 15 DAYS
     Route: 065
     Dates: start: 20191002
  13. SANDOSTATIN LAR DEPOT [Suspect]
     Active Substance: OCTREOTIDE ACETATE
     Dosage: APPLICATION AT 15 DAYS
     Route: 065
     Dates: start: 20191030
  14. SANDOSTATIN LAR DEPOT [Suspect]
     Active Substance: OCTREOTIDE ACETATE
     Dosage: 20 MG, EVERY 15 DAYS
     Route: 030
     Dates: end: 20200305
  15. SANDOSTATIN LAR DEPOT [Suspect]
     Active Substance: OCTREOTIDE ACETATE
     Dosage: 20 MG, EVERY 15 DAYS
     Route: 030
     Dates: start: 20190417
  16. SANDOSTATIN LAR DEPOT [Suspect]
     Active Substance: OCTREOTIDE ACETATE
     Dosage: UNK
     Route: 065
     Dates: start: 20200514
  17. SANDOSTATIN LAR DEPOT [Suspect]
     Active Substance: OCTREOTIDE ACETATE
     Dosage: APPLICATION AT 15 DAYS
     Route: 065
     Dates: start: 20190710
  18. SANDOSTATIN LAR DEPOT [Suspect]
     Active Substance: OCTREOTIDE ACETATE
     Dosage: APPLICATION AT 15 DAYS
     Route: 065
     Dates: start: 20190807
  19. SANDOSTATIN LAR DEPOT [Suspect]
     Active Substance: OCTREOTIDE ACETATE
     Dosage: APPLICATION AT 15 DAYS
     Route: 065
     Dates: start: 20190918
  20. SANDOSTATIN LAR DEPOT [Suspect]
     Active Substance: OCTREOTIDE ACETATE
     Dosage: APPLICATION AT 15 DAYS
     Route: 065
     Dates: start: 20191113
  21. SANDOSTATIN LAR DEPOT [Suspect]
     Active Substance: OCTREOTIDE ACETATE
     Dosage: UNK
     Route: 065
     Dates: start: 20200528
  22. SANDOSTATIN LAR DEPOT [Suspect]
     Active Substance: OCTREOTIDE ACETATE
     Dosage: 20 MG (ONCE EVERY 15 DAYS)
     Route: 030
     Dates: start: 20201125
  23. SANDOSTATIN LAR DEPOT [Suspect]
     Active Substance: OCTREOTIDE ACETATE
     Dosage: 20 MG, EVERY 22 DAYS
     Route: 030
     Dates: start: 20170909
  24. SANDOSTATIN LAR DEPOT [Suspect]
     Active Substance: OCTREOTIDE ACETATE
     Dosage: UNK
     Route: 065
     Dates: start: 20191225
  25. BONVIVA [Concomitant]
     Active Substance: IBANDRONATE SODIUM
     Indication: OSTEOPOROSIS
     Dosage: 3 MG, Q3MO
     Route: 030
     Dates: start: 20150627
  26. SANDOSTATIN LAR DEPOT [Suspect]
     Active Substance: OCTREOTIDE ACETATE
     Dosage: EVERY 15 DAYS
     Route: 065
     Dates: start: 20190126
  27. SANDOSTATIN LAR DEPOT [Suspect]
     Active Substance: OCTREOTIDE ACETATE
     Dosage: 20 MG, EVERY 15 DAYS
     Route: 030
     Dates: start: 20190205
  28. SANDOSTATIN LAR DEPOT [Suspect]
     Active Substance: OCTREOTIDE ACETATE
     Dosage: 20 MG, EVERY 15 DAYS
     Route: 030
     Dates: start: 20190221
  29. SANDOSTATIN LAR DEPOT [Suspect]
     Active Substance: OCTREOTIDE ACETATE
     Dosage: 20 MG, EVERY 12 DAYS
     Route: 030
     Dates: start: 20190305
  30. SANDOSTATIN LAR DEPOT [Suspect]
     Active Substance: OCTREOTIDE ACETATE
     Dosage: APPLICATION AT 15 DAYS
     Route: 065
     Dates: start: 20190529
  31. SANDOSTATIN LAR DEPOT [Suspect]
     Active Substance: OCTREOTIDE ACETATE
     Dosage: APPLICATION AT 15 DAYS
     Route: 065
     Dates: start: 20190626
  32. SANDOSTATIN LAR DEPOT [Suspect]
     Active Substance: OCTREOTIDE ACETATE
     Dosage: APPLICATION AT 14 DAYS
     Route: 065
     Dates: start: 20191127
  33. SANDOSTATIN LAR DEPOT [Suspect]
     Active Substance: OCTREOTIDE ACETATE
     Dosage: UNK, EVERY 15 DAYS
     Route: 065
     Dates: start: 20191211
  34. SANDOSTATIN LAR DEPOT [Suspect]
     Active Substance: OCTREOTIDE ACETATE
     Dosage: 60 MG, QMO (40 MG IN THE FIRST 15 DAYS OF THE MONTH AND 20 MG ON THE LAST 15 DAYS)
     Route: 030
     Dates: start: 20200306, end: 20201124
  35. SANDOSTATIN LAR DEPOT [Suspect]
     Active Substance: OCTREOTIDE ACETATE
     Dosage: UNK
     Route: 065
     Dates: start: 20200727
  36. SANDOSTATIN LAR DEPOT [Suspect]
     Active Substance: OCTREOTIDE ACETATE
     Dosage: UNK (APPLICATION EVER 15 DAYSY )
     Route: 030
     Dates: start: 20201228
  37. SANDOSTATIN LAR DEPOT [Suspect]
     Active Substance: OCTREOTIDE ACETATE
     Indication: NEUROENDOCRINE TUMOUR
     Dosage: 20 MG, QMO
     Route: 030
     Dates: start: 20160518, end: 20171102
  38. SANDOSTATIN LAR DEPOT [Suspect]
     Active Substance: OCTREOTIDE ACETATE
     Dosage: APPLICATION AT 14 DAYS
     Route: 065
     Dates: start: 20190821
  39. SANDOSTATIN LAR DEPOT [Suspect]
     Active Substance: OCTREOTIDE ACETATE
     Dosage: UNK
     Route: 030
     Dates: start: 20200612
  40. SANDOSTATIN LAR DEPOT [Suspect]
     Active Substance: OCTREOTIDE ACETATE
     Dosage: 40 MG, QMO
     Route: 030
     Dates: end: 20210124

REACTIONS (13)
  - Angiopathy [Unknown]
  - Carcinoid tumour [Unknown]
  - Hepatomegaly [Unknown]
  - Incorrect route of product administration [Unknown]
  - Neuroendocrine tumour [Not Recovered/Not Resolved]
  - Influenza [Not Recovered/Not Resolved]
  - Depressed mood [Recovering/Resolving]
  - Diarrhoea [Recovering/Resolving]
  - Metastases to ovary [Not Recovered/Not Resolved]
  - Malignant neoplasm progression [Not Recovered/Not Resolved]
  - Inappropriate schedule of product administration [Unknown]
  - Drug ineffective [Unknown]
  - Weight decreased [Not Recovered/Not Resolved]

NARRATIVE: CASE EVENT DATE: 20160627
